FAERS Safety Report 16693396 (Version 2)
Quarter: 2019Q3

REPORT INFORMATION
  Report Type: Spontaneous
  Country: FR (occurrence: FR)
  Receive Date: 20190812
  Receipt Date: 20190830
  Transmission Date: 20191004
  Serious: Yes (Death, Hospitalization)
  Sender: FDA-Public Use
  Company Number: FR-PFIZER INC-2019340839

PATIENT
  Age: 29 Year
  Sex: Female

DRUGS (6)
  1. BEVACIZUMAB. [Suspect]
     Active Substance: BEVACIZUMAB
     Dosage: UNK
     Route: 042
     Dates: start: 20120813, end: 20120907
  2. HYCAMTIN [Suspect]
     Active Substance: TOPOTECAN HYDROCHLORIDE
     Dosage: UNK
     Route: 042
     Dates: start: 20120813, end: 20120907
  3. CARBOPLATIN. [Concomitant]
     Active Substance: CARBOPLATIN
     Indication: ADENOCARCINOMA
     Dosage: UNK
     Dates: start: 20100101, end: 20100101
  4. TAXOL [Concomitant]
     Active Substance: PACLITAXEL
     Indication: ADENOCARCINOMA
     Dosage: UNK
     Dates: start: 20100101, end: 20100101
  5. FEMARA [Concomitant]
     Active Substance: LETROZOLE
     Indication: ADENOCARCINOMA
     Dosage: UNK
     Dates: start: 20120201
  6. CISPLATIN. [Concomitant]
     Active Substance: CISPLATIN
     Indication: ADENOCARCINOMA
     Dosage: UNK
     Dates: start: 20100101, end: 20100101

REACTIONS (11)
  - Cardio-respiratory arrest [Fatal]
  - Pyrexia [Fatal]
  - Pneumoperitoneum [Fatal]
  - Nervous system disorder [Fatal]
  - Faecaloma [Fatal]
  - Peritonitis [Fatal]
  - Anaemia [Fatal]
  - Abdominal pain [Fatal]
  - Thrombocytosis [Fatal]
  - Gastrointestinal perforation [Fatal]
  - Small intestinal obstruction [Fatal]

NARRATIVE: CASE EVENT DATE: 20120101
